FAERS Safety Report 8061057-2 (Version None)
Quarter: 2012Q1

REPORT INFORMATION
  Report Type: 
  Country: None (occurrence: None)
  Receive Date: 20120120
  Receipt Date: 20110510
  Transmission Date: 20120608
  Serious: No
  Sender: FDA-Public Use
  Company Number: US-ALLERGAN-1106433US

PATIENT
  Age: 78 Year
  Sex: Female

DRUGS (2)
  1. RESTASIS [Suspect]
     Indication: DRY EYE
     Dosage: 1 DROP INSTILLED TWICE DAILY TO EACH EYE
     Route: 047
     Dates: end: 20110507
  2. REFRESH PLUS [Concomitant]
     Indication: DRY EYE
     Dosage: UNK
     Route: 047

REACTIONS (1)
  - FOREIGN BODY SENSATION IN EYES [None]
